FAERS Safety Report 8417609-0 (Version None)
Quarter: 2012Q2

REPORT INFORMATION
  Report Type: 
  Country: None (occurrence: None)
  Receive Date: 20120606
  Receipt Date: 20120531
  Transmission Date: 20120825
  Serious: Yes (Other)
  Sender: FDA-Public Use
  Company Number: BR-ROCHE-1075025

PATIENT
  Age: 22 Year
  Sex: Female

DRUGS (1)
  1. XOLAIR [Suspect]
     Indication: PRODUCT USED FOR UNKNOWN INDICATION
     Dates: start: 20091026, end: 20110912

REACTIONS (3)
  - THERAPEUTIC RESPONSE UNEXPECTED [None]
  - BRONCHOSPASM [None]
  - RESPIRATORY TRACT INFECTION [None]
